FAERS Safety Report 16179825 (Version 1)
Quarter: 2019Q2

REPORT INFORMATION
  Report Type: Spontaneous
  Country: IT (occurrence: IT)
  Receive Date: 20190410
  Receipt Date: 20190410
  Transmission Date: 20190711
  Serious: Yes (Life-Threatening)
  Sender: FDA-Public Use
  Company Number: IT-ASTRAZENECA-2019SE53355

PATIENT
  Age: 39 Year
  Sex: Female

DRUGS (5)
  1. ESOMEPRAZOLE SODIUM. [Suspect]
     Active Substance: ESOMEPRAZOLE SODIUM
     Route: 048
     Dates: start: 20190314, end: 20190314
  2. DEPAKIN [Suspect]
     Active Substance: VALPROATE SODIUM
     Dosage: 25.0G ONCE/SINGLE ADMINISTRATION
     Route: 048
     Dates: start: 20190314, end: 20190314
  3. GABAPENTIN. [Suspect]
     Active Substance: GABAPENTIN
     Dosage: 16.2G ONCE/SINGLE ADMINISTRATION
     Route: 048
     Dates: start: 20190314, end: 20190314
  4. PAROXETINE. [Suspect]
     Active Substance: PAROXETINE
     Dosage: 560.0MG ONCE/SINGLE ADMINISTRATION
     Route: 065
     Dates: start: 20190314, end: 20190314
  5. INDERAL [Suspect]
     Active Substance: PROPRANOLOL HYDROCHLORIDE
     Dosage: 1.2G ONCE/SINGLE ADMINISTRATION
     Route: 048
     Dates: start: 20190314, end: 20190314

REACTIONS (1)
  - Coma [Recovering/Resolving]

NARRATIVE: CASE EVENT DATE: 20190314
